FAERS Safety Report 16090364 (Version 1)
Quarter: 2019Q1

REPORT INFORMATION
  Report Type: Spontaneous
  Country: US (occurrence: US)
  Receive Date: 20190215
  Receipt Date: 20190215
  Transmission Date: 20190418
  Serious: No
  Sender: FDA-Public Use
  Company Number: None

PATIENT
  Age: 69 Year
  Sex: Female

DRUGS (1)
  1. SYNTHROID [Suspect]
     Active Substance: LEVOTHYROXINE SODIUM
     Indication: HYPOTHYROIDISM
     Route: 048
     Dates: start: 20190125

REACTIONS (5)
  - Urticaria [None]
  - Rash macular [None]
  - Swelling [None]
  - Erythema [None]
  - Product substitution issue [None]

NARRATIVE: CASE EVENT DATE: 20190125
